FAERS Safety Report 7735256-0 (Version None)
Quarter: 2011Q3

REPORT INFORMATION
  Report Type: 
  Country: None (occurrence: None)
  Receive Date: 20110907
  Receipt Date: 20110902
  Transmission Date: 20111222
  Serious: Yes (Hospitalization)
  Sender: FDA-Public Use
  Company Number: US-VERTEX PHARMACEUTICALS INC.-AE-2011-001267

PATIENT
  Age: 59 Year
  Sex: Female

DRUGS (7)
  1. PEGINTERFERON [Concomitant]
     Indication: HEPATITIS C
     Dates: start: 20110701
  2. FLEXERIL [Concomitant]
  3. NORVASC [Concomitant]
     Indication: BLOOD PRESSURE
  4. HYDROCHLOROTHIAZIDE [Concomitant]
     Indication: BLOOD PRESSURE
  5. NORMODYNE [Concomitant]
     Indication: BLOOD PRESSURE
  6. RIBAVIRIN [Concomitant]
     Indication: HEPATITIS C
     Dates: start: 20110701
  7. INCIVEK [Suspect]
     Indication: HEPATITIS C
     Dates: start: 20110701, end: 20110831

REACTIONS (1)
  - SYNCOPE [None]
